FAERS Safety Report 21704772 (Version 1)
Quarter: 2022Q4

REPORT INFORMATION
  Report Type: Spontaneous
  Country: GB (occurrence: GB)
  Receive Date: 20221209
  Receipt Date: 20221209
  Transmission Date: 20230113
  Serious: Yes (Other)
  Sender: FDA-Public Use
  Company Number: None

PATIENT
  Age: 30 Year
  Sex: Female
  Weight: 86 kg

DRUGS (6)
  1. PREGABALIN [Suspect]
     Active Substance: PREGABALIN
     Indication: Ill-defined disorder
     Dates: start: 20221129
  2. PREGABALIN [Suspect]
     Active Substance: PREGABALIN
     Indication: Ill-defined disorder
     Dosage: TAKE ONE TWICE DAILY
     Dates: start: 20221109
  3. CITALOPRAM [Concomitant]
     Active Substance: CITALOPRAM HYDROBROMIDE
     Indication: Ill-defined disorder
     Dosage: ONE TO BE TAKEN EACH DAY
     Dates: start: 20220808
  4. CODEINE PHOSPHATE [Concomitant]
     Active Substance: CODEINE PHOSPHATE
     Indication: Ill-defined disorder
     Dosage: TAKE ONE 4 TIMES/DAY
     Dates: start: 20221104, end: 20221111
  5. BECLOMETHASONE\FORMOTEROL [Concomitant]
     Active Substance: BECLOMETHASONE\FORMOTEROL
     Indication: Ill-defined disorder
     Dosage: TWO PUFFS TO BE INHALED TWICE A DAY
     Dates: start: 20220330
  6. ALBUTEROL [Concomitant]
     Active Substance: ALBUTEROL
     Indication: Ill-defined disorder
     Dosage: ONE OR TWO PUFFS TO BE INHALED UP TO FOUR TIMES
     Dates: start: 20220203

REACTIONS (1)
  - Negative thoughts [Recovering/Resolving]

NARRATIVE: CASE EVENT DATE: 20221129
